FAERS Safety Report 25431993 (Version 3)
Quarter: 2025Q2

REPORT INFORMATION
  Report Type: Report from Study
  Country: TR (occurrence: TR)
  Receive Date: 20250613
  Receipt Date: 20250622
  Transmission Date: 20250716
  Serious: Yes (Hospitalization)
  Sender: SANOFI AVENTIS
  Company Number: TR-SA-2025SA165896

PATIENT
  Age: 30 Year
  Sex: Female
  Weight: 98.8 kg

DRUGS (48)
  1. OXALIPLATIN [Suspect]
     Active Substance: OXALIPLATIN
     Indication: Diffuse large B-cell lymphoma
     Route: 042
     Dates: start: 20250508
  2. EPCORITAMAB [Suspect]
     Active Substance: EPCORITAMAB
     Indication: Diffuse large B-cell lymphoma
  3. RITUXIMAB [Suspect]
     Active Substance: RITUXIMAB
     Indication: Diffuse large B-cell lymphoma
     Route: 042
     Dates: start: 20250508
  4. GEMCITABINE [Suspect]
     Active Substance: GEMCITABINE
     Indication: Diffuse large B-cell lymphoma
     Route: 042
     Dates: start: 20250508
  5. AUGMENTIN [Concomitant]
     Active Substance: AMOXICILLIN\CLAVULANATE POTASSIUM
     Indication: Skin infection
  6. AUGMENTIN [Concomitant]
     Active Substance: AMOXICILLIN\CLAVULANATE POTASSIUM
     Dosage: 1000 MG, BID
     Dates: start: 20250511, end: 20250515
  7. VALTREX [Concomitant]
     Active Substance: VALACYCLOVIR HYDROCHLORIDE
     Indication: Infection prophylaxis
  8. VALTREX [Concomitant]
     Active Substance: VALACYCLOVIR HYDROCHLORIDE
     Dosage: 500 MG, BID
     Dates: start: 20250508
  9. BACTRIM [Concomitant]
     Active Substance: SULFAMETHOXAZOLE\TRIMETHOPRIM
     Indication: Infection prophylaxis
  10. BACTRIM [Concomitant]
     Active Substance: SULFAMETHOXAZOLE\TRIMETHOPRIM
     Dosage: 400 MG, QD
     Dates: start: 20250508
  11. LANSOPRAZOLE [Concomitant]
     Active Substance: LANSOPRAZOLE
     Indication: Gastritis
  12. LANSOPRAZOLE [Concomitant]
     Active Substance: LANSOPRAZOLE
     Dosage: 30 MG, QD
     Dates: start: 2008
  13. MAXIPEN [Concomitant]
     Active Substance: PHENETHICILLIN POTASSIUM
     Indication: Skin infection
  14. MAXIPEN [Concomitant]
     Active Substance: PHENETHICILLIN POTASSIUM
     Dosage: 1 G, TID
     Dates: start: 20250515, end: 20250516
  15. TARGOCID [Concomitant]
     Active Substance: TEICOPLANIN
     Indication: Skin infection
  16. TARGOCID [Concomitant]
     Active Substance: TEICOPLANIN
     Dosage: 400 MG, BID
     Dates: start: 20250515, end: 20250522
  17. Partemol [Concomitant]
     Indication: Antipyresis
  18. Partemol [Concomitant]
     Indication: Premedication
     Dosage: 10 MG, QD
     Dates: start: 20250515, end: 20250518
  19. Partemol [Concomitant]
     Dates: start: 20250522, end: 20250522
  20. Tazeracin [Concomitant]
     Indication: Skin infection
  21. Tazeracin [Concomitant]
     Dosage: 4.5 G, Q6H
     Dates: start: 20250516, end: 20250522
  22. Magosit [Concomitant]
     Indication: Prophylaxis
  23. Magosit [Concomitant]
     Dosage: 365 MG, QD
     Dates: start: 20250516, end: 20250523
  24. Amikaver [Concomitant]
     Indication: Skin infection
  25. Amikaver [Concomitant]
     Dates: start: 20250515
  26. Fito [Concomitant]
     Indication: Skin infection
  27. Fito [Concomitant]
     Dosage: 5 G, TID
     Dates: start: 20250515, end: 20250520
  28. PHENIRAMINE MALEATE [Concomitant]
     Active Substance: PHENIRAMINE MALEATE
     Indication: Antiallergic therapy
  29. PHENIRAMINE MALEATE [Concomitant]
     Active Substance: PHENIRAMINE MALEATE
     Dates: start: 20250522, end: 20250522
  30. DIPHENHYDRAMINE HYDROCHLORIDE [Concomitant]
     Active Substance: DIPHENHYDRAMINE HYDROCHLORIDE
     Indication: Skin infection
  31. DIPHENHYDRAMINE HYDROCHLORIDE [Concomitant]
     Active Substance: DIPHENHYDRAMINE HYDROCHLORIDE
     Dosage: 1 %, Q6H
     Dates: start: 20250526
  32. Fraven [Concomitant]
     Indication: Neutropenia
  33. Fraven [Concomitant]
     Dates: start: 20250520, end: 20250520
  34. Fraven [Concomitant]
     Dosage: 48 IU, QD
     Dates: start: 20250516, end: 20250517
  35. COSMETICS [Concomitant]
     Active Substance: COSMETICS
     Indication: Skin infection
  36. COSMETICS [Concomitant]
     Active Substance: COSMETICS
     Dosage: 10 ML, QD
     Dates: start: 20250519, end: 20250522
  37. GLYCOSAMINOGLYCANS [Concomitant]
     Active Substance: GLYCOSAMINOGLYCANS
     Indication: Skin infection
  38. GLYCOSAMINOGLYCANS [Concomitant]
     Active Substance: GLYCOSAMINOGLYCANS
     Dosage: 1 G, QD
     Dates: start: 20250519, end: 20250521
  39. Crebros [Concomitant]
     Indication: Skin infection
  40. Crebros [Concomitant]
     Dates: start: 20250526
  41. DEKORT [Concomitant]
     Active Substance: DEXAMETHASONE
     Indication: Premedication
     Dates: start: 20250522, end: 20250522
  42. PANTHENOL [Concomitant]
     Active Substance: PANTHENOL
     Indication: Pruritus
     Dosage: 30 G, QD
     Dates: start: 20250517, end: 20250522
  43. Klindan [Concomitant]
     Indication: Skin infection
     Dosage: 150 MG, TID
     Dates: start: 20250523, end: 20250528
  44. Calcimax d3 [Concomitant]
     Indication: Prophylaxis
     Dosage: UNK, QD
     Dates: start: 20250516, end: 20250523
  45. DEXPANTHENOL [Concomitant]
     Active Substance: DEXPANTHENOL
     Indication: Pruritus
     Dates: start: 20250516, end: 20250516
  46. Prednol [Concomitant]
     Indication: Lymphoedema
     Dosage: 16 MG, QD
     Dates: start: 20250502, end: 20250507
  47. Desal [Concomitant]
     Indication: Oedema
     Dosage: 40 MG, BID
     Dates: start: 20250419, end: 20250523
  48. HUMAN RED BLOOD CELL [Concomitant]
     Active Substance: HUMAN RED BLOOD CELL
     Indication: Anaemia
     Dates: start: 20250525, end: 20250525

REACTIONS (1)
  - Groin pain [Recovered/Resolved]

NARRATIVE: CASE EVENT DATE: 20250603
